FAERS Safety Report 7396270-0 (Version None)
Quarter: 2011Q2

REPORT INFORMATION
  Report Type: 
  Country: None (occurrence: None)
  Receive Date: 20110406
  Receipt Date: 20110331
  Transmission Date: 20111010
  Serious: Yes (Hospitalization)
  Sender: FDA-Public Use
  Company Number: IT-SANOFI-AVENTIS-2011SA019395

PATIENT
  Age: 75 Year
  Sex: Male

DRUGS (10)
  1. COUMADIN [Suspect]
     Route: 048
     Dates: start: 20110322
  2. ASPIRIN [Suspect]
     Indication: PLATELET AGGREGATION INHIBITION
     Route: 048
     Dates: start: 20100323, end: 20110323
  3. KARVEZIDE [Concomitant]
     Route: 065
  4. COUMADIN [Suspect]
     Route: 048
     Dates: start: 20100323
  5. LASIX [Concomitant]
     Route: 048
  6. ALLOPURINOL [Concomitant]
     Route: 048
  7. GLYCERYL TRINITRATE [Concomitant]
     Route: 062
  8. CLEXANE [Suspect]
     Route: 058
     Dates: start: 20100323, end: 20110323
  9. DOXAZOSIN MESYLATE [Concomitant]
     Route: 048
  10. SIMVASTATIN [Concomitant]
     Route: 048

REACTIONS (2)
  - INTERNATIONAL NORMALISED RATIO INCREASED [None]
  - HAEMOPTYSIS [None]
